FAERS Safety Report 10627674 (Version 1)
Quarter: 2014Q4

REPORT INFORMATION
  Report Type: Spontaneous
  Country: US (occurrence: None)
  Receive Date: 20141203
  Receipt Date: 20141203
  Transmission Date: 20150529
  Serious: No
  Sender: FDA-Public Use
  Company Number: None

PATIENT
  Age: 26 Year
  Sex: Female

DRUGS (2)
  1. PROACTIV PLUS PORE TARGETING TREATMENT [Suspect]
     Active Substance: BENZOYL PEROXIDE
     Indication: ACNE
     Dates: start: 20141105, end: 20141121
  2. PROACTIVPLUS SKIN SMOOTHING EXFOLIATOR [Suspect]
     Active Substance: BENZOYL PEROXIDE
     Indication: ACNE
     Dates: start: 20141105, end: 20141121

REACTIONS (6)
  - Dry skin [None]
  - Skin exfoliation [None]
  - Pruritus [None]
  - Skin burning sensation [None]
  - Erythema [None]
  - Pain [None]

NARRATIVE: CASE EVENT DATE: 20141106
